FAERS Safety Report 11690145 (Version 2)
Quarter: 2015Q4

REPORT INFORMATION
  Report Type: Spontaneous
  Country: DE (occurrence: DE)
  Receive Date: 20151102
  Receipt Date: 20151210
  Transmission Date: 20160304
  Serious: Yes (Life-Threatening, Other)
  Sender: FDA-Public Use
  Company Number: DE-JNJFOC-20151022975

PATIENT
  Sex: Female
  Weight: 55 kg

DRUGS (4)
  1. ENDOXANA [Concomitant]
     Active Substance: CYCLOPHOSPHAMIDE
     Route: 065
  2. VINCRISTIN [Concomitant]
     Active Substance: VINCRISTINE
     Route: 065
  3. CAELYX [Suspect]
     Active Substance: DOXORUBICIN HYDROCHLORIDE
     Indication: OVARIAN CANCER
     Route: 042
  4. RITUXIMAB [Concomitant]
     Active Substance: RITUXIMAB
     Route: 065

REACTIONS (3)
  - Respiratory distress [Recovered/Resolved]
  - Depressed level of consciousness [Recovered/Resolved]
  - Blood pressure decreased [Recovered/Resolved]
